FAERS Safety Report 4356184-7 (Version None)
Quarter: 2004Q2

REPORT INFORMATION
  Report Type: 
  Country: None (occurrence: None)
  Receive Date: 20040507
  Receipt Date: 20040329
  Transmission Date: 20050107
  Serious: Yes (Hospitalization)
  Sender: FDA-Public Use
  Company Number: 7865

PATIENT
  Age: 70 Year
  Sex: Male

DRUGS (3)
  1. LEUCOVORIN CALCIUM [Suspect]
     Indication: LARGE INTESTINE CARCINOMA
     Dosage: 75 MG PO
     Route: 048
     Dates: start: 20031220, end: 20040220
  2. UFT [Suspect]
     Indication: LARGE INTESTINE CARCINOMA
     Dosage: 300 MG/500 MG PO
     Route: 048
     Dates: start: 20030528, end: 20031219
  3. UFT [Suspect]
     Indication: LARGE INTESTINE CARCINOMA
     Dosage: 300 MG/500 MG PO
     Route: 048
     Dates: start: 20031220, end: 20040220

REACTIONS (5)
  - ALANINE AMINOTRANSFERASE INCREASED [None]
  - ASPARTATE AMINOTRANSFERASE INCREASED [None]
  - GASTROINTESTINAL DISORDER [None]
  - INAPPROPRIATE ANTIDIURETIC HORMONE SECRETION [None]
  - LUNG NEOPLASM [None]
